FAERS Safety Report 15976922 (Version 1)
Quarter: 2019Q1

REPORT INFORMATION
  Report Type: Spontaneous
  Country: PL (occurrence: PL)
  Receive Date: 20190218
  Receipt Date: 20190218
  Transmission Date: 20190418
  Serious: Yes (Other)
  Sender: FDA-Public Use
  Company Number: PL-MYLANLABS-2019M1013568

PATIENT
  Age: 47 Year
  Sex: Male

DRUGS (29)
  1. PREDNISONE. [Suspect]
     Active Substance: PREDNISONE
     Dosage: 80 MILLIGRAM, UNK
     Route: 048
     Dates: start: 201701
  2. PREDNISONE. [Suspect]
     Active Substance: PREDNISONE
     Dosage: 75 MILLIGRAM, UNK
     Route: 048
     Dates: start: 201504
  3. MYCOPHENOLATE MOFETIL. [Concomitant]
     Active Substance: MYCOPHENOLATE MOFETIL
     Dosage: UNK
     Dates: start: 201408, end: 201502
  4. WARFARIN [Concomitant]
     Active Substance: WARFARIN
     Indication: PULMONARY EMBOLISM
  5. PREDNISONE. [Suspect]
     Active Substance: PREDNISONE
     Dosage: PREDNISONE IN A TAPERING DOSAGE (25 MG TO 20 MG)
     Route: 048
     Dates: start: 201610, end: 201701
  6. PREDNISONE. [Suspect]
     Active Substance: PREDNISONE
     Dosage: PREDNISONE IN A TAPERING DOSAGE (40 MG TO 20 MG)
     Route: 048
     Dates: start: 201605, end: 201608
  7. MYCOPHENOLATE MOFETIL. [Concomitant]
     Active Substance: MYCOPHENOLATE MOFETIL
     Indication: PULMONARY ALVEOLAR HAEMORRHAGE
     Dosage: 2 GRAM, UNK
     Dates: start: 201502, end: 201610
  8. WARFARIN [Concomitant]
     Active Substance: WARFARIN
     Indication: DEEP VEIN THROMBOSIS
  9. PREDNISONE. [Suspect]
     Active Substance: PREDNISONE
     Indication: PULMONARY ALVEOLAR HAEMORRHAGE
     Dosage: PREDNISONE IN TAPERING DOSAGE (80 MG TO 20 MG)
     Route: 048
     Dates: start: 201401, end: 201407
  10. PREDNISONE. [Suspect]
     Active Substance: PREDNISONE
     Dosage: 100 MILLIGRAM, UNK
     Route: 048
     Dates: start: 201502
  11. METHYLPREDNISOLONE. [Concomitant]
     Active Substance: METHYLPREDNISOLONE
     Dosage: THREE METHYLPREDNISOLONE PULSES (750 MG, 1000 MG,1000 MG)
     Dates: start: 201312, end: 201312
  12. CLARITHROMYCIN. [Concomitant]
     Active Substance: CLARITHROMYCIN
     Indication: PULMONARY ALVEOLAR HAEMORRHAGE
  13. PREDNISONE. [Suspect]
     Active Substance: PREDNISONE
     Dosage: PREDNISONE IN A TAPERING DOSAGE (90 MG TO 75 MG)
     Route: 048
     Dates: start: 201502, end: 201504
  14. PREDNISONE. [Suspect]
     Active Substance: PREDNISONE
     Dosage: PREDNISONE IN A TAPERING DOSAGE (65 MG TO 15 MG)
     Route: 048
     Dates: start: 201504, end: 201605
  15. MYCOPHENOLATE MOFETIL. [Concomitant]
     Active Substance: MYCOPHENOLATE MOFETIL
     Dosage: 3 MILLIGRAM, UNK
     Dates: start: 201610, end: 201804
  16. METHYLPREDNISOLONE. [Concomitant]
     Active Substance: METHYLPREDNISOLONE
     Indication: PULMONARY ALVEOLAR HAEMORRHAGE
     Dosage: THREE METHYLPREDNISOLONE PULSES (500 MG EACH)
  17. PREDNISONE. [Suspect]
     Active Substance: PREDNISONE
     Dosage: 30 MILLIGRAM, UNK
     Route: 048
     Dates: start: 201608
  18. PREDNISONE. [Suspect]
     Active Substance: PREDNISONE
     Dosage: 20 MILLIGRAM, MONTHLY
     Route: 048
     Dates: start: 201802, end: 201804
  19. FLUCONAZOLE. [Concomitant]
     Active Substance: FLUCONAZOLE
     Indication: PULMONARY ALVEOLAR HAEMORRHAGE
     Dosage: UNK
  20. PREDNISONE. [Suspect]
     Active Substance: PREDNISONE
     Dosage: PREDNISONE IN A TAPERING DOSAGE (50 MG TO 20 MG)
     Route: 048
     Dates: start: 201701, end: 201801
  21. PREDNISONE. [Suspect]
     Active Substance: PREDNISONE
     Dosage: PREDNISONE IN A TAPERING DOSAGE (30 MG TO 25 MG)
     Route: 048
     Dates: start: 201608, end: 201610
  22. AMOXICILINA + CLAVULANICO [Concomitant]
     Active Substance: AMOXICILLIN\CLAVULANIC ACID
     Indication: PULMONARY ALVEOLAR HAEMORRHAGE
     Dosage: UNK
  23. METHYLPREDNISOLONE. [Concomitant]
     Active Substance: METHYLPREDNISOLONE
     Dosage: THREE METHYLPREDNISOLONE PULSES (500 MG, 1000 MG,1000 MG)
     Dates: start: 201701
  24. CYCLOPHOSPHAMIDE. [Concomitant]
     Active Substance: CYCLOPHOSPHAMIDE
     Indication: PULMONARY ALVEOLAR HAEMORRHAGE
     Dosage: SIX CYCLOPHOSPHAMIDE PULSES, 1.5 G EACH
     Dates: start: 201401, end: 201407
  25. PREDNISONE. [Suspect]
     Active Substance: PREDNISONE
     Dosage: 40 MILLIGRAM, UNK
     Route: 048
     Dates: start: 201605
  26. WARFARIN [Concomitant]
     Active Substance: WARFARIN
     Indication: THROMBOSIS
  27. PREDNISONE. [Suspect]
     Active Substance: PREDNISONE
     Dosage: PREDNISONE IN A TAPERING DOSAGE (55 MG TO 25 MG)
     Route: 048
     Dates: start: 201408, end: 201502
  28. PREDNISONE. [Suspect]
     Active Substance: PREDNISONE
     Dosage: 60 MILLIGRAM, UNK
     Route: 048
     Dates: start: 201408
  29. PREDNISONE. [Suspect]
     Active Substance: PREDNISONE
     Dosage: 80 MILLIGRAM, UNK
     Route: 048
     Dates: start: 201312, end: 201312

REACTIONS (2)
  - Osteoporotic fracture [Unknown]
  - Pneumonia [Unknown]
